FAERS Safety Report 8769590 (Version 1)
Quarter: 2012Q4

REPORT INFORMATION
  Report Type: 
  Country: US (occurrence: US)
  Receive Date: 20120905
  Receipt Date: 20120905
  Transmission Date: 20130627
  Serious: Yes (Hospitalization)
  Sender: FDA-Public Use
  Company Number: US-ACTELION-A-NJ2012-70812

PATIENT
  Age: 48 Year
  Sex: Male

DRUGS (5)
  1. TRACLEER [Suspect]
     Indication: PULMONARY ARTERIAL HYPERTENSION
     Dosage: UNK
     Route: 048
  2. ASPIRIN [Concomitant]
  3. SPIRONOLACTONE [Concomitant]
  4. LASIX [Concomitant]
  5. COUMADIN [Concomitant]

REACTIONS (2)
  - Pulmonary embolism [Unknown]
  - Thrombectomy [Unknown]
